FAERS Safety Report 21254038 (Version 1)
Quarter: 2022Q3

REPORT INFORMATION
  Report Type: Spontaneous
  Country: US (occurrence: US)
  Receive Date: 20220825
  Receipt Date: 20220825
  Transmission Date: 20221026
  Serious: No
  Sender: FDA-Public Use
  Company Number: US-PFIZER INC-202201021171

PATIENT
  Age: 69 Year
  Sex: Female
  Weight: 51.71 kg

DRUGS (1)
  1. PAXLOVID [Suspect]
     Active Substance: NIRMATRELVIR\RITONAVIR
     Indication: COVID-19 treatment
     Dosage: UNK, 2X/DAY, (2 DIFFERENT THAN THE THIRD , 2 PINK / 1 YELLOW)
     Dates: start: 20220728

REACTIONS (2)
  - Intentional product misuse [Unknown]
  - Wrong technique in product usage process [Unknown]

NARRATIVE: CASE EVENT DATE: 20220728
